FAERS Safety Report 9400115 (Version 1)
Quarter: 2013Q3

REPORT INFORMATION
  Report Type: Spontaneous
  Country: US (occurrence: US)
  Receive Date: 20130715
  Receipt Date: 20130715
  Transmission Date: 20140515
  Serious: Yes (Other)
  Sender: FDA-Public Use
  Company Number: US-NOVOPROD-382023

PATIENT
  Age: 56 Year
  Sex: Female

DRUGS (1)
  1. NOVOLOG MIX 70/30 FLEXPEN [Suspect]
     Indication: TYPE 2 DIABETES MELLITUS
     Dosage: UNK
     Route: 058

REACTIONS (3)
  - Blindness [Unknown]
  - Product quality issue [Unknown]
  - Blood glucose increased [Not Recovered/Not Resolved]
